FAERS Safety Report 8410057-9 (Version None)
Quarter: 2012Q2

REPORT INFORMATION
  Report Type: 
  Country: None (occurrence: None)
  Receive Date: 20120605
  Receipt Date: 20120529
  Transmission Date: 20120825
  Serious: Yes (Hospitalization)
  Sender: FDA-Public Use
  Company Number: US-BAYER-2012-050328

PATIENT
  Age: 38 Year
  Sex: Female
  Weight: 90.249 kg

DRUGS (13)
  1. BEYAZ [Suspect]
     Indication: PREMENSTRUAL SYNDROME
     Dosage: UNK
     Dates: start: 20110801, end: 20111201
  2. YAZ [Suspect]
     Dosage: UNK
     Dates: start: 20110801
  3. LORATADINE AND PSEUDOEPHEDRINE SULFATE [Concomitant]
     Indication: SINUS DISORDER
     Dosage: 1 PILL 12 HOURS
     Dates: start: 20111101
  4. ROBAXIN [Concomitant]
     Dosage: 500 MG, TID
     Route: 048
  5. PROTONIX [Concomitant]
     Dosage: 40 MG, DAILY
     Route: 048
  6. ZOLOFT [Concomitant]
     Indication: ANXIETY
     Dosage: 100 MG, DAILY
     Route: 048
     Dates: start: 20110701
  7. IBUPROFEN [Concomitant]
     Indication: PAIN
     Dosage: 800 MG, TID AS NEEDED
     Route: 048
     Dates: start: 20111116
  8. CEFTIN [Concomitant]
  9. NEXIUM [Concomitant]
     Indication: GASTROOESOPHAGEAL REFLUX DISEASE
     Dosage: 40 MG, DAILY
     Route: 048
     Dates: start: 20010101
  10. TORADOL [Concomitant]
     Dosage: 10 MG, QID
     Route: 048
  11. ANTIBIOTICS [Concomitant]
     Indication: PNEUMONIA
     Route: 042
  12. IBUPROFEN [Concomitant]
     Dosage: 400 MG, Q4HR
     Route: 048
     Dates: start: 20111116
  13. SINUS [Concomitant]
     Indication: NASAL CONGESTION
     Dosage: 2 PILLS EVERY 6 HOURS
     Dates: start: 20111117, end: 20111120

REACTIONS (8)
  - EMOTIONAL DISTRESS [None]
  - GENERAL PHYSICAL HEALTH DETERIORATION [None]
  - ANXIETY [None]
  - INJURY [None]
  - PULMONARY EMBOLISM [None]
  - DYSPNOEA [None]
  - PAIN [None]
  - ANHEDONIA [None]
